FAERS Safety Report 7581783-9 (Version None)
Quarter: 2011Q2

REPORT INFORMATION
  Report Type: 
  Country: None (occurrence: None)
  Receive Date: 20110629
  Receipt Date: 20110620
  Transmission Date: 20111010
  Serious: Yes (Death)
  Sender: FDA-Public Use
  Company Number: JP-ELI_LILLY_AND_COMPANY-JP201106003951

PATIENT
  Sex: Female

DRUGS (7)
  1. CARVEDILOL [Concomitant]
  2. FORTEO [Suspect]
     Indication: OSTEOPOROSIS POSTMENOPAUSAL
     Dosage: 20 UG, QD
     Route: 058
     Dates: start: 20101028
  3. MAGNESIUM OXIDE [Concomitant]
  4. LAXOBERON [Concomitant]
  5. LANSOPRAZOLE [Concomitant]
  6. LUVOX [Concomitant]
  7. LENDORMIN [Concomitant]

REACTIONS (2)
  - DECREASED APPETITE [None]
  - MARASMUS [None]
